FAERS Safety Report 12659155 (Version 4)
Quarter: 2016Q4

REPORT INFORMATION
  Report Type: Report from Study
  Country: US (occurrence: US)
  Receive Date: 20160817
  Receipt Date: 20161007
  Transmission Date: 20170207
  Serious: Yes (Hospitalization)
  Sender: FDA-Public Use
  Company Number: US-BIOGEN-2016BI00279174

PATIENT
  Age: 69 Year
  Sex: Female

DRUGS (1)
  1. TYSABRI [Suspect]
     Active Substance: NATALIZUMAB
     Indication: MULTIPLE SCLEROSIS
     Dosage: INFUSED OVER 1 HOUR
     Route: 042
     Dates: start: 20160811, end: 20160811

REACTIONS (9)
  - Cerebrovascular accident [Recovered/Resolved]
  - Facial paresis [Unknown]
  - Hypersomnia [Recovered/Resolved]
  - Dysstasia [Unknown]
  - Asthenia [Unknown]
  - Gait disturbance [Unknown]
  - Musculoskeletal disorder [Unknown]
  - Speech disorder [Unknown]
  - Fear [Unknown]

NARRATIVE: CASE EVENT DATE: 20160811
